FAERS Safety Report 4586960-7 (Version None)
Quarter: 2005Q1

REPORT INFORMATION
  Report Type: 
  Country: None (occurrence: None)
  Receive Date: 20050218
  Receipt Date: 20030902
  Transmission Date: 20050727
  Serious: Yes (Hospitalization, Disabling)
  Sender: FDA-Public Use
  Company Number: US-MERCK-0309USA00395

PATIENT
  Age: 55 Year
  Sex: Male

DRUGS (17)
  1. ZOCOR [Suspect]
     Route: 048
     Dates: start: 20001027, end: 20010619
  2. ZOCOR [Suspect]
     Route: 048
     Dates: start: 20030507
  3. ZOCOR [Suspect]
     Route: 048
     Dates: start: 20020128
  4. LEVAQUIN [Suspect]
     Route: 048
     Dates: start: 20030829
  5. LISINOPRIL [Concomitant]
     Indication: BLOOD PRESSURE
     Route: 048
     Dates: start: 20030507, end: 20030829
  6. LISINOPRIL [Concomitant]
     Route: 048
     Dates: start: 20030830
  7. LISINOPRIL [Concomitant]
     Indication: RENAL DISORDER
     Route: 048
     Dates: start: 20030507, end: 20030829
  8. LISINOPRIL [Concomitant]
     Route: 048
     Dates: start: 20030830
  9. DANAZOL [Concomitant]
     Route: 048
     Dates: start: 20020429
  10. DANAZOL [Concomitant]
     Route: 048
     Dates: start: 20000214
  11. METFORMIN HCL [Suspect]
     Route: 048
     Dates: start: 20021219
  12. OLANZAPINE [Concomitant]
     Route: 048
     Dates: start: 20020213
  13. VENLAFAXINE HYDROCHLORIDE [Concomitant]
     Route: 065
     Dates: start: 20020213
  14. VENLAFAXINE HYDROCHLORIDE [Concomitant]
     Route: 065
  15. VENLAFAXINE HYDROCHLORIDE [Concomitant]
     Route: 065
  16. CITALOPRAM HYDROBROMIDE [Concomitant]
     Route: 048
     Dates: start: 20020509
  17. CITALOPRAM HYDROBROMIDE [Concomitant]
     Route: 048

REACTIONS (24)
  - ACUTE SINUSITIS [None]
  - ANAEMIA [None]
  - CALCINOSIS [None]
  - CATHETER SEPSIS [None]
  - CONFUSIONAL STATE [None]
  - CYSTITIS [None]
  - DRUG INTERACTION [None]
  - ELECTROLYTE IMBALANCE [None]
  - HAEMODIALYSIS [None]
  - HYPERCALCAEMIA [None]
  - HYPERKALAEMIA [None]
  - HYPOCALCAEMIA [None]
  - ILEUS PARALYTIC [None]
  - LEUKOCYTOSIS [None]
  - MEDICATION ERROR [None]
  - PNEUMONIA [None]
  - PROSTATITIS [None]
  - RENAL FAILURE ACUTE [None]
  - RHABDOMYOLYSIS [None]
  - STAPHYLOCOCCAL INFECTION [None]
  - URINARY RETENTION [None]
  - URINARY TRACT INFECTION PSEUDOMONAL [None]
  - URINARY TRACT INFECTION STAPHYLOCOCCAL [None]
  - WEIGHT DECREASED [None]
